FAERS Safety Report 6692439-9 (Version None)
Quarter: 2010Q2

REPORT INFORMATION
  Report Type: 
  Country: None (occurrence: None)
  Receive Date: 20100422
  Receipt Date: 20100204
  Transmission Date: 20101027
  Serious: No
  Sender: FDA-Public Use
  Company Number: US-ASTRAZENECA-2010SE05151

PATIENT
  Sex: Female
  Weight: 130 kg

DRUGS (1)
  1. TOPROL-XL [Suspect]
     Route: 048
     Dates: start: 20030101

REACTIONS (6)
  - DRY MOUTH [None]
  - GASTROOESOPHAGEAL REFLUX DISEASE [None]
  - OROPHARYNGEAL PAIN [None]
  - PHARYNGEAL DISORDER [None]
  - POSTNASAL DRIP [None]
  - SINUSITIS [None]
